FAERS Safety Report 8197837-2 (Version None)
Quarter: 2012Q1

REPORT INFORMATION
  Report Type: 
  Country: None (occurrence: None)
  Receive Date: 20120307
  Receipt Date: 20120221
  Transmission Date: 20120608
  Serious: Yes (Other)
  Sender: FDA-Public Use
  Company Number: 2012-0389

PATIENT
  Age: 76 Year
  Sex: Male
  Weight: 88.5 kg

DRUGS (15)
  1. NORVASC [Concomitant]
  2. HYDROCHLOROTHIAZIDE [Concomitant]
  3. MOTRIN [Concomitant]
  4. ANTIFUNGAL (ANTIFUNGALS) [Concomitant]
  5. PRILOSEC [Concomitant]
  6. LISINOPRIL [Concomitant]
  7. LIPITOR [Concomitant]
  8. CARDURA [Concomitant]
  9. DYSPORT [Suspect]
     Indication: SKIN WRINKLING
     Dosage: 100 UNITS (100 UNITS, SINGLE CYCLE), PARENTERAL, 100 UNITS (100 UNITS, SINGLE CYCLE, PARENTERAL
     Route: 051
     Dates: start: 20111121, end: 20111121
  10. DYSPORT [Suspect]
     Indication: HEADACHE
     Dosage: 100 UNITS (100 UNITS, SINGLE CYCLE), PARENTERAL, 100 UNITS (100 UNITS, SINGLE CYCLE, PARENTERAL
     Route: 051
     Dates: start: 20111121, end: 20111121
  11. DYSPORT [Suspect]
     Indication: OFF LABEL USE
     Dosage: 100 UNITS (100 UNITS, SINGLE CYCLE), PARENTERAL, 100 UNITS (100 UNITS, SINGLE CYCLE, PARENTERAL
     Route: 051
     Dates: start: 20111121, end: 20111121
  12. DYSPORT [Suspect]
     Indication: SKIN WRINKLING
     Dosage: 100 UNITS (100 UNITS, SINGLE CYCLE), PARENTERAL, 100 UNITS (100 UNITS, SINGLE CYCLE, PARENTERAL
     Route: 051
     Dates: start: 20111111, end: 20111111
  13. DYSPORT [Suspect]
     Indication: HEADACHE
     Dosage: 100 UNITS (100 UNITS, SINGLE CYCLE), PARENTERAL, 100 UNITS (100 UNITS, SINGLE CYCLE, PARENTERAL
     Route: 051
     Dates: start: 20111111, end: 20111111
  14. DYSPORT [Suspect]
     Indication: OFF LABEL USE
     Dosage: 100 UNITS (100 UNITS, SINGLE CYCLE), PARENTERAL, 100 UNITS (100 UNITS, SINGLE CYCLE, PARENTERAL
     Route: 051
     Dates: start: 20111111, end: 20111111
  15. DYSPORT [Suspect]

REACTIONS (9)
  - CEREBROVASCULAR ACCIDENT [None]
  - SPEECH DISORDER [None]
  - TRANSIENT ISCHAEMIC ATTACK [None]
  - DRUG INEFFECTIVE [None]
  - DRY MOUTH [None]
  - DEPRESSION [None]
  - DYSPHAGIA [None]
  - DEHYDRATION [None]
  - ANXIETY [None]
